FAERS Safety Report 11159252 (Version 1)
Quarter: 2015Q2

REPORT INFORMATION
  Report Type: Spontaneous
  Country: US (occurrence: None)
  Receive Date: 20150601
  Receipt Date: 20150601
  Transmission Date: 20150821
  Serious: Yes (Disabling, Other)
  Sender: FDA-Public Use
  Company Number: None

PATIENT
  Age: 39 Year
  Sex: Female
  Weight: 62.14 kg

DRUGS (3)
  1. XULANE [Suspect]
     Active Substance: ETHINYL ESTRADIOL\NORELGESTROMIN
     Indication: HORMONE THERAPY
     Dosage: 1 PATCH/WEEK CHANGED WEEKLY
     Route: 061
     Dates: start: 20150502, end: 20150509
  2. XULANE [Suspect]
     Active Substance: ETHINYL ESTRADIOL\NORELGESTROMIN
     Indication: MIGRAINE
     Dosage: 1 PATCH/WEEK CHANGED WEEKLY
     Route: 061
     Dates: start: 20150502, end: 20150509
  3. XULANE [Suspect]
     Active Substance: ETHINYL ESTRADIOL\NORELGESTROMIN
     Indication: PAIN MANAGEMENT
     Dosage: 1 PATCH/WEEK CHANGED WEEKLY
     Route: 061
     Dates: start: 20150502, end: 20150509

REACTIONS (2)
  - Product quality issue [None]
  - Migraine [None]

NARRATIVE: CASE EVENT DATE: 20150502
